FAERS Safety Report 5068218-5 (Version None)
Quarter: 2006Q3

REPORT INFORMATION
  Report Type: 
  Country: None (occurrence: None)
  Receive Date: 20060802
  Receipt Date: 20050607
  Transmission Date: 20061208
  Serious: Yes (Other)
  Sender: FDA-Public Use
  Company Number: US-BRISTOL-MYERS SQUIBB COMPANY-12995940

PATIENT

DRUGS (1)
  1. WARFARIN SODIUM [Suspect]
     Indication: COAGULOPATHY

REACTIONS (3)
  - DEEP VEIN THROMBOSIS [None]
  - EYE HAEMORRHAGE [None]
  - PULMONARY EMBOLISM [None]
